FAERS Safety Report 5833912-2 (Version None)
Quarter: 2008Q3

REPORT INFORMATION
  Report Type: 
  Country: None (occurrence: None)
  Receive Date: 20080805
  Receipt Date: 20080728
  Transmission Date: 20090109
  Serious: Yes (Life-Threatening, Hospitalization, Disabling, Other)
  Sender: FDA-Public Use
  Company Number: B0528367A

PATIENT
  Age: 34 Year
  Sex: Male

DRUGS (3)
  1. COMBIVIR [Suspect]
     Indication: HIV INFECTION
     Dosage: 1TAB TWICE PER DAY
     Route: 048
     Dates: start: 20070501
  2. KALETRA [Concomitant]
     Dosage: 2TAB TWICE PER DAY
     Route: 048
     Dates: start: 20070501
  3. PENICILLIN V [Concomitant]
     Dosage: 1TAB TWICE PER DAY
     Route: 048

REACTIONS (2)
  - LEFT VENTRICULAR DYSFUNCTION [None]
  - MYOCARDIAL INFARCTION [None]
